FAERS Safety Report 6616806-4 (Version None)
Quarter: 2010Q1

REPORT INFORMATION
  Report Type: 
  Country: None (occurrence: None)
  Receive Date: 20100305
  Receipt Date: 20100127
  Transmission Date: 20100710
  Serious: Yes (Death)
  Sender: FDA-Public Use
  Company Number: JP-PFIZER INC-2009311998

PATIENT
  Age: 10 Month
  Sex: Female
  Weight: 4.5 kg

DRUGS (13)
  1. SILDENAFIL CITRATE [Suspect]
     Indication: PULMONARY ARTERIAL HYPERTENSION
     Dosage: FREQUENCY: 3X/DAY,
     Route: 048
     Dates: start: 20090601, end: 20091212
  2. FLOLAN [Concomitant]
     Indication: PULMONARY ARTERIAL HYPERTENSION
     Dosage: UNK
     Route: 042
     Dates: start: 20090225, end: 20091212
  3. TRACLEER [Concomitant]
     Indication: PULMONARY ARTERIAL HYPERTENSION
     Dosage: UNK
     Route: 048
     Dates: start: 20090430, end: 20091212
  4. LYPLE [Concomitant]
     Indication: PULMONARY ARTERIAL HYPERTENSION
     Dosage: UNK
     Route: 042
     Dates: end: 20091212
  5. MUCODYNE [Concomitant]
     Dosage: UNK
     Route: 048
     Dates: end: 20091212
  6. ERYTHROCIN LACTOBIONATE [Concomitant]
     Dosage: UNK
     Route: 048
     Dates: start: 20090802, end: 20091212
  7. MUCOSOLVAN [Concomitant]
     Dosage: UNK
     Route: 048
     Dates: end: 20091212
  8. MIDAZOLAM [Concomitant]
     Dosage: UNK
     Route: 042
     Dates: end: 20091212
  9. VECURONIUM BROMIDE [Concomitant]
     Dosage: UNK
     Route: 042
     Dates: end: 20091212
  10. INOVAN [Concomitant]
     Dosage: UNK
     Route: 042
     Dates: end: 20091212
  11. CORETEC [Concomitant]
     Dosage: UNK
     Route: 042
     Dates: end: 20091212
  12. LASIX [Concomitant]
     Dosage: UNK
     Route: 042
     Dates: end: 20091212
  13. NITRIC OXIDE [Concomitant]
     Indication: PULMONARY ARTERIAL HYPERTENSION
     Dosage: UNK
     Dates: end: 20091212

REACTIONS (1)
  - CARDIAC FAILURE [None]
